FAERS Safety Report 19806806 (Version 1)
Quarter: 2021Q3

REPORT INFORMATION
  Report Type: Spontaneous
  Country: IT (occurrence: IT)
  Receive Date: 20210909
  Receipt Date: 20210909
  Transmission Date: 20211014
  Serious: Yes (Hospitalization, Other)
  Sender: FDA-Public Use
  Company Number: IT-MICRO LABS LIMITED-ML2021-02146

PATIENT
  Age: 13 Year
  Sex: Male

DRUGS (13)
  1. LEVETIRACETAM. [Suspect]
     Active Substance: LEVETIRACETAM
     Indication: PARTIAL SEIZURES
  2. PHENOBARBITAL. [Suspect]
     Active Substance: PHENOBARBITAL
  3. PERAMPANEL [Suspect]
     Active Substance: PERAMPANEL
  4. VALPROATE SODIUM. [Suspect]
     Active Substance: VALPROATE SODIUM
  5. LIDOCAINE. [Suspect]
     Active Substance: LIDOCAINE
  6. KETAMINE HYDROCHLORIDE. [Suspect]
     Active Substance: KETAMINE HYDROCHLORIDE
  7. LACOSAMIDE. [Suspect]
     Active Substance: LACOSAMIDE
  8. CLOBAZAM. [Suspect]
     Active Substance: CLOBAZAM
  9. CARBAMAZEPINE. [Suspect]
     Active Substance: CARBAMAZEPINE
  10. BENZODIAZEPINES [Suspect]
     Active Substance: BENZODIAZEPINE
  11. MIDAZOLAM. [Suspect]
     Active Substance: MIDAZOLAM
  12. PHENYTOIN. [Suspect]
     Active Substance: PHENYTOIN
  13. TOPIRAMATE. [Suspect]
     Active Substance: TOPIRAMATE

REACTIONS (1)
  - Drug ineffective [Unknown]
